FAERS Safety Report 16643014 (Version 1)
Quarter: 2019Q3

REPORT INFORMATION
  Report Type: Spontaneous
  Country: ES (occurrence: ES)
  Receive Date: 20190729
  Receipt Date: 20190729
  Transmission Date: 20191004
  Serious: Yes (Other)
  Sender: FDA-Public Use
  Company Number: ES-BAYER-2019-140792

PATIENT
  Age: 46 Year
  Sex: Female

DRUGS (1)
  1. ACTIRA [Suspect]
     Active Substance: MOXIFLOXACIN HYDROCHLORIDE
     Indication: DENTAL OPERATION
     Dosage: UNK
     Route: 048

REACTIONS (4)
  - Tremor [Recovering/Resolving]
  - Muscular weakness [Recovering/Resolving]
  - Somnolence [Recovering/Resolving]
  - Paraesthesia [Recovering/Resolving]

NARRATIVE: CASE EVENT DATE: 20190713
